FAERS Safety Report 12846433 (Version 3)
Quarter: 2016Q4

REPORT INFORMATION
  Report Type: Spontaneous
  Country: MX (occurrence: MX)
  Receive Date: 20161014
  Receipt Date: 20161027
  Transmission Date: 20170207
  Serious: Yes (Hospitalization)
  Sender: FDA-Public Use
  Company Number: MX-009507513-1610MEX002822

PATIENT
  Age: 85 Year
  Sex: Male
  Weight: 59 kg

DRUGS (3)
  1. MESALAMINE. [Concomitant]
     Active Substance: MESALAMINE
     Indication: COLITIS ULCERATIVE
     Dosage: 500 MG, Q12H
     Dates: start: 2006
  2. INVANZ [Suspect]
     Active Substance: ERTAPENEM SODIUM
     Indication: URINARY TRACT INFECTION
     Dosage: UNK
     Route: 030
     Dates: start: 20160928
  3. JANUMET [Concomitant]
     Active Substance: METFORMIN HYDROCHLORIDE\SITAGLIPTIN PHOSPHATE
     Indication: DIABETES MELLITUS
     Dosage: 50/850MG, EVERY 24 HOURS
     Route: 048
     Dates: start: 201601

REACTIONS (6)
  - Insomnia [Unknown]
  - Hallucination [Unknown]
  - Agitation [Unknown]
  - Drug hypersensitivity [Unknown]
  - Psychotic disorder [Unknown]
  - Somnolence [Recovered/Resolved]

NARRATIVE: CASE EVENT DATE: 2016
